FAERS Safety Report 5974651-7 (Version None)
Quarter: 2008Q4

REPORT INFORMATION
  Report Type: 
  Country: None (occurrence: None)
  Receive Date: 20081201
  Receipt Date: 20081121
  Transmission Date: 20090506
  Serious: Yes (Other)
  Sender: FDA-Public Use
  Company Number: US-PFIZER INC-2008100026

PATIENT
  Age: 35 Year
  Sex: Female

DRUGS (6)
  1. VARENICLINE TABLETS [Suspect]
     Indication: SMOKING CESSATION THERAPY
  2. TOPIRAMATE [Concomitant]
     Dosage: DAILY DOSE:200MG
     Route: 048
  3. DULOXETINE [Concomitant]
     Dosage: DAILY DOSE:120MG
     Route: 048
  4. MODAFINIL [Concomitant]
     Dosage: DAILY DOSE:400MG
     Route: 048
  5. CLONAZEPAM [Concomitant]
     Dosage: DAILY DOSE:2MG-TEXT:AT NIGHT
     Route: 048
  6. CANNABIS [Concomitant]
     Dosage: TEXT:ONE JOINT DAILY

REACTIONS (3)
  - AGGRESSION [None]
  - IRRITABILITY [None]
  - PARANOIA [None]
